FAERS Safety Report 16464905 (Version 1)
Quarter: 2019Q2

REPORT INFORMATION
  Report Type: Spontaneous
  Country: CA (occurrence: CA)
  Receive Date: 20190621
  Receipt Date: 20190621
  Transmission Date: 20190711
  Serious: Yes (Other)
  Sender: FDA-Public Use
  Company Number: CA-TEVA-2019-CA-1065854

PATIENT
  Age: 27 Year
  Sex: Female

DRUGS (1)
  1. ETHINYLESTRADIOL/LEVONORGESTREL [Suspect]
     Active Substance: ETHINYL ESTRADIOL\LEVONORGESTREL
     Indication: CONTRACEPTION
     Dosage: 1 DOSAGE FORMS DAILY;
     Route: 048

REACTIONS (6)
  - Vaginal haemorrhage [Unknown]
  - Abdominal pain lower [Unknown]
  - Breast discolouration [Unknown]
  - Abortion spontaneous [Unknown]
  - Drug ineffective [Unknown]
  - Unintended pregnancy [Unknown]
